FAERS Safety Report 18166100 (Version 1)
Quarter: 2020Q3

REPORT INFORMATION
  Report Type: Spontaneous
  Country: US (occurrence: US)
  Receive Date: 20200818
  Receipt Date: 20200818
  Transmission Date: 20201103
  Serious: No
  Sender: FDA-Public Use
  Company Number: US-TEVA-2020-US-1815633

PATIENT
  Age: 55 Year

DRUGS (1)
  1. CARBIDOPA AND LEVODOPA [Suspect]
     Active Substance: CARBIDOPA\LEVODOPA
     Dosage: CARVIDOPA LEVADOPA 25/100 MG
     Route: 065

REACTIONS (2)
  - Rash [Unknown]
  - Headache [Unknown]
